FAERS Safety Report 9265847 (Version 2)
Quarter: 2013Q2

REPORT INFORMATION
  Report Type: Spontaneous
  Country: GR (occurrence: GR)
  Receive Date: 20130501
  Receipt Date: 20130521
  Transmission Date: 20140414
  Serious: Yes (Death, Hospitalization)
  Sender: FDA-Public Use
  Company Number: GR-GLAXOSMITHKLINE-B0888602A

PATIENT
  Age: 52 Year
  Sex: Male

DRUGS (1)
  1. VOTRIENT [Suspect]
     Indication: RENAL CANCER METASTATIC
     Route: 065

REACTIONS (4)
  - Rash [Fatal]
  - Ulcer [Fatal]
  - Respiratory tract infection [Fatal]
  - Neutropenia [Fatal]
